FAERS Safety Report 5466995-2 (Version None)
Quarter: 2007Q3

REPORT INFORMATION
  Report Type: 
  Country: None (occurrence: None)
  Receive Date: 20070924
  Receipt Date: 20070924
  Transmission Date: 20080115
  Serious: Yes (Other)
  Sender: FDA-Public Use
  Company Number: None

PATIENT
  Sex: Female
  Weight: 54.4316 kg

DRUGS (2)
  1. ICY HOT HEAT THERAPY 3.9^X5.3^ PATCH CHATTEM [Suspect]
     Indication: MUSCULOSKELETAL PAIN
     Dosage: SINGLE PATCH ONCE TOP
     Route: 062
     Dates: start: 20070917, end: 20070917
  2. ICY HOT HEAT THERAPY 3.9^X5.3^ PATCH CHATTEM [Suspect]
     Indication: NECK PAIN
     Dosage: SINGLE PATCH ONCE TOP
     Route: 062
     Dates: start: 20070917, end: 20070917

REACTIONS (4)
  - BLISTER [None]
  - SKIN EXFOLIATION [None]
  - SKIN WARM [None]
  - THERMAL BURN [None]
